FAERS Safety Report 8939249 (Version 3)
Quarter: 2013Q1

REPORT INFORMATION
  Report Type: Spontaneous
  Country: US (occurrence: US)
  Receive Date: 20121203
  Receipt Date: 20130225
  Transmission Date: 20140127
  Serious: No
  Sender: FDA-Public Use
  Company Number: US-PFIZER INC-2012301376

PATIENT
  Age: 81 Year
  Sex: Female
  Weight: 74.38 kg

DRUGS (3)
  1. ATORVASTATIN CALCIUM [Suspect]
     Indication: BLOOD CHOLESTEROL INCREASED
     Dosage: UNK, DAILY
     Dates: end: 201211
  2. LEVOTHYROXINE SODIUM [Concomitant]
     Indication: HYPOTHYROIDISM
     Dosage: UNK, DAILY
  3. PERPHENAZINE/AMITRIPTYLINE [Concomitant]
     Indication: ANXIETY
     Dosage: [PERPHENAZINE 2 MG] / [AMITRIPTYLINE 25 MG] , UNK

REACTIONS (3)
  - Dizziness [Recovered/Resolved]
  - Urine odour abnormal [Recovered/Resolved]
  - Influenza [Recovered/Resolved]
